FAERS Safety Report 24362367 (Version 1)
Quarter: 2024Q3

REPORT INFORMATION
  Report Type: Spontaneous
  Country: US (occurrence: None)
  Receive Date: 20240925
  Receipt Date: 20240925
  Transmission Date: 20241017
  Serious: Yes (Other)
  Sender: Public
  Company Number: None

PATIENT
  Sex: 0

DRUGS (1)
  1. STELARA [Suspect]
     Active Substance: USTEKINUMAB

REACTIONS (2)
  - IgA nephropathy [None]
  - Cutaneous vasculitis [None]
